FAERS Safety Report 19486535 (Version 2)
Quarter: 2021Q4

REPORT INFORMATION
  Report Type: Spontaneous
  Country: JP (occurrence: JP)
  Receive Date: 20210702
  Receipt Date: 20211007
  Transmission Date: 20220303
  Serious: Yes (Hospitalization, Other)
  Sender: FDA-Public Use
  Company Number: JP-UNITED THERAPEUTICS-UNT-2017-008236

PATIENT
  Age: 42 Year
  Sex: Female
  Weight: 63.5 kg

DRUGS (18)
  1. REMODULIN [Suspect]
     Active Substance: TREPROSTINIL
     Indication: Pulmonary arterial hypertension
     Dosage: 0.001 ?G/KG, CONTINUING
     Route: 041
     Dates: start: 20170422
  2. REMODULIN [Suspect]
     Active Substance: TREPROSTINIL
     Dosage: 0.034 ?G/KG, CONTINUING
     Route: 041
     Dates: start: 2017
  3. REMODULIN [Suspect]
     Active Substance: TREPROSTINIL
     Dosage: 0.0874 ?G/KG, CONTINUING
     Route: 041
     Dates: start: 2017
  4. REMODULIN [Suspect]
     Active Substance: TREPROSTINIL
     Dosage: 0.221 ?G/KG, CONTINUING
     Route: 041
     Dates: end: 2019
  5. REMODULIN [Suspect]
     Active Substance: TREPROSTINIL
     Dosage: 0.224 ?G/KG, CONTINUING
     Route: 041
     Dates: start: 2019, end: 2019
  6. REMODULIN [Suspect]
     Active Substance: TREPROSTINIL
     Dosage: 0.245 ?G/KG, CONTINUING
     Route: 041
     Dates: start: 2019, end: 2019
  7. REMODULIN [Suspect]
     Active Substance: TREPROSTINIL
     Dosage: 0.257 ?G/KG, CONTINUING
     Route: 041
     Dates: start: 2019, end: 2019
  8. REMODULIN [Suspect]
     Active Substance: TREPROSTINIL
     Dosage: 0.264 ?G/KG, CONTINUING
     Route: 041
     Dates: start: 2019
  9. OPSUMIT [Concomitant]
     Active Substance: MACITENTAN
     Indication: Pulmonary arterial hypertension
     Dosage: UNK
     Route: 048
     Dates: start: 2017
  10. ADEMPAS [Concomitant]
     Active Substance: RIOCIGUAT
     Indication: Pulmonary arterial hypertension
     Dosage: UNK
     Route: 048
     Dates: start: 201704
  11. AZOSEMIDE [Concomitant]
     Active Substance: AZOSEMIDE
     Indication: Cardiac failure chronic
     Dosage: UNK
     Route: 048
     Dates: start: 20170523, end: 20190418
  12. POTASSIUM GLUCONATE [Concomitant]
     Active Substance: POTASSIUM GLUCONATE
     Indication: Prophylaxis
     Dosage: UNK
     Route: 048
     Dates: start: 20170523
  13. AZOSEMIDE [Concomitant]
     Active Substance: AZOSEMIDE
     Indication: Cardiac failure chronic
     Dosage: UNK
     Route: 048
     Dates: start: 201704, end: 20170522
  14. AZOSEMIDE [Concomitant]
     Active Substance: AZOSEMIDE
     Dosage: UNK
     Route: 048
     Dates: start: 20190419
  15. MIYA-BM [Concomitant]
     Active Substance: CLOSTRIDIUM BUTYRICUM SPORES STRAIN M-55
     Indication: Prophylaxis
     Dosage: UNK
     Route: 048
     Dates: start: 20171005
  16. BERBERINE\GERANIUM [Concomitant]
     Active Substance: BERBERINE\GERANIUM
     Indication: Prophylaxis
     Dosage: UNK
     Route: 048
     Dates: start: 20170920
  17. Lopemin [Concomitant]
     Indication: Prophylaxis
     Dosage: UNK
     Route: 048
     Dates: start: 20171005
  18. CEFACLOR [Concomitant]
     Active Substance: CEFACLOR
     Indication: Prophylaxis
     Dosage: UNK
     Route: 048
     Dates: start: 20210603

REACTIONS (12)
  - Diarrhoea [Recovering/Resolving]
  - Vascular device infection [Recovering/Resolving]
  - Vascular device infection [Recovering/Resolving]
  - Vascular device infection [Recovering/Resolving]
  - Palpitations [Recovering/Resolving]
  - Dyspnoea [Recovering/Resolving]
  - Pain in extremity [Recovering/Resolving]
  - Pain in jaw [Recovering/Resolving]
  - Abdominal pain [Recovering/Resolving]
  - Vascular device infection [Recovering/Resolving]
  - Dermatitis allergic [Not Recovered/Not Resolved]
  - Pyrexia [Recovering/Resolving]

NARRATIVE: CASE EVENT DATE: 20170501
